FAERS Safety Report 17358192 (Version 1)
Quarter: 2020Q1

REPORT INFORMATION
  Report Type: Spontaneous
  Country: CO (occurrence: CO)
  Receive Date: 20200131
  Receipt Date: 20200131
  Transmission Date: 20200409
  Serious: Yes (Other)
  Sender: FDA-Public Use
  Company Number: CO-BIOMARINAP-CO-2020-128201

PATIENT
  Age: 14 Year
  Weight: 19.5 kg

DRUGS (1)
  1. VIMIZIM [Suspect]
     Active Substance: ELOSULFASE ALFA
     Indication: MUCOPOLYSACCHARIDOSIS IV
     Dosage: UNK
     Route: 042
     Dates: start: 20170324, end: 2018

REACTIONS (4)
  - Gait disturbance [Unknown]
  - Kyphosis [Unknown]
  - Spinal flattening [Unknown]
  - Otitis media acute [Unknown]
